FAERS Safety Report 5150357-1 (Version None)
Quarter: 2006Q4

REPORT INFORMATION
  Report Type: 
  Country: None (occurrence: None)
  Receive Date: 20061110
  Receipt Date: 20061110
  Transmission Date: 20070319
  Serious: No
  Sender: FDA-Public Use
  Company Number: None

PATIENT
  Sex: Male
  Weight: 73.9363 kg

DRUGS (1)
  1. ACETAMINOPHEN 500 MG CAPLETS SAFEWAY [Suspect]
     Indication: PAIN IN EXTREMITY
     Dosage: 2 TABS 2-3 X/DAY PO
     Route: 048
     Dates: start: 20061101, end: 20061109

REACTIONS (2)
  - POOR QUALITY DRUG ADMINISTERED [None]
  - STOMACH DISCOMFORT [None]
